FAERS Safety Report 5457003-8 (Version None)
Quarter: 2007Q3

REPORT INFORMATION
  Report Type: 
  Country: None (occurrence: None)
  Receive Date: 20070918
  Receipt Date: 20070228
  Transmission Date: 20080115
  Serious: Yes (Hospitalization)
  Sender: FDA-Public Use
  Company Number: US-ASTRAZENECA-2006UW27817

PATIENT
  Age: 223 Month
  Sex: Female
  Weight: 70.5 kg

DRUGS (3)
  1. SEROQUEL [Suspect]
     Indication: SCHIZOPHRENIA
     Route: 048
     Dates: start: 20040101
  2. ABILIFY [Concomitant]
     Dates: start: 20050101
  3. GEODON [Concomitant]
     Dates: start: 20050101

REACTIONS (1)
  - TYPE 1 DIABETES MELLITUS [None]
